FAERS Safety Report 4626786-9 (Version None)
Quarter: 2005Q2

REPORT INFORMATION
  Report Type: 
  Country: None (occurrence: None)
  Receive Date: 20050401
  Receipt Date: 20050401
  Transmission Date: 20051028
  Serious: Yes (Hospitalization)
  Sender: FDA-Public Use
  Company Number: None

PATIENT
  Age: 76 Year
  Sex: Female
  Weight: 102.5 kg

DRUGS (13)
  1. METFORMIN 500MG [Suspect]
     Indication: DIABETES MELLITUS
     Dosage: 1000MG BID ORAL
     Route: 048
  2. AUGMENTIN [Concomitant]
  3. FUROSEMIDE [Concomitant]
  4. WARFARIN SODIUM [Concomitant]
  5. CAPTOPRIL [Concomitant]
  6. ACTOS [Concomitant]
  7. OXAZEPAM [Concomitant]
  8. HYZAAR [Concomitant]
  9. SERTRALINE HCL [Concomitant]
  10. METOLAZONE [Concomitant]
  11. SPIRONOLACTONE [Concomitant]
  12. ATORVASTATIN CALCIUM [Concomitant]
  13. METOPROLOL TARTRATE [Concomitant]

REACTIONS (4)
  - DIARRHOEA [None]
  - FLUID INTAKE REDUCED [None]
  - NAUSEA [None]
  - VOMITING [None]
